FAERS Safety Report 9452978 (Version 1)
Quarter: 2013Q3

REPORT INFORMATION
  Report Type: Spontaneous
  Country: NO (occurrence: NO)
  Receive Date: 20130812
  Receipt Date: 20130812
  Transmission Date: 20140515
  Serious: Yes (Other)
  Sender: FDA-Public Use
  Company Number: NO-GALDERMA-NO13002497

PATIENT
  Age: 29 Year
  Sex: Female

DRUGS (1)
  1. EPIDUO [Suspect]
     Indication: ACNE
     Dosage: 01%-2.5%?ONE APPLICATION IN HER FACE
     Route: 003
     Dates: start: 20130721, end: 20130721

REACTIONS (5)
  - Rash vesicular [Not Recovered/Not Resolved]
  - Rash pruritic [Not Recovered/Not Resolved]
  - Rash [Not Recovered/Not Resolved]
  - Swelling face [Not Recovered/Not Resolved]
  - Erythema [Not Recovered/Not Resolved]
